FAERS Safety Report 9263927 (Version 2)
Quarter: 2013Q2

REPORT INFORMATION
  Report Type: Spontaneous
  Country: IT (occurrence: IT)
  Receive Date: 20130430
  Receipt Date: 20130619
  Transmission Date: 20140414
  Serious: Yes (Hospitalization)
  Sender: FDA-Public Use
  Company Number: IT-ALLERGAN-1305988US

PATIENT
  Age: 78 Year
  Sex: Female
  Weight: 64 kg

DRUGS (7)
  1. EXOCIN? 0.3% COLLIRIO, SOLUZIONE [Suspect]
     Indication: CONJUNCTIVITIS
     Dosage: 1 GTT, TOTAL
     Route: 047
     Dates: start: 20130330, end: 20130330
  2. LOSARTAN [Concomitant]
     Indication: PRODUCT USED FOR UNKNOWN INDICATION
     Route: 048
  3. SIVASTIN [Concomitant]
     Indication: PRODUCT USED FOR UNKNOWN INDICATION
     Dosage: 20 MG, UNK
     Route: 048
  4. ASACOL [Concomitant]
     Indication: PRODUCT USED FOR UNKNOWN INDICATION
     Dosage: 800 MG
     Route: 048
  5. CARDIRENE [Concomitant]
     Indication: PRODUCT USED FOR UNKNOWN INDICATION
     Dosage: 75 MG, UNK
     Route: 048
  6. DILTIAZEM HYDROCHLORIDE [Concomitant]
     Indication: PRODUCT USED FOR UNKNOWN INDICATION
     Route: 048
  7. PANTOPRAZOLE SODIUM [Concomitant]
     Indication: PRODUCT USED FOR UNKNOWN INDICATION
     Route: 048

REACTIONS (2)
  - Hypotension [Recovered/Resolved]
  - Dyspnoea [Recovered/Resolved]
